FAERS Safety Report 18330100 (Version 1)
Quarter: 2020Q3

REPORT INFORMATION
  Report Type: Spontaneous
  Country: US (occurrence: US)
  Receive Date: 20200927
  Receipt Date: 20200927
  Transmission Date: 20201103
  Serious: Yes (Other)
  Sender: FDA-Public Use
  Company Number: None

PATIENT
  Age: 6 Decade
  Sex: Male

DRUGS (5)
  1. RITONAVIR. [Suspect]
     Active Substance: RITONAVIR
     Indication: COVID-19
     Dosage: DOSE: 400/100 MG
     Route: 048
     Dates: start: 2020
  2. LIANHUAQINGWEN [Suspect]
     Active Substance: HERBALS
     Indication: COVID-19
     Route: 048
     Dates: start: 2020
  3. LOPINAVIR [Suspect]
     Active Substance: LOPINAVIR
     Indication: COVID-19
     Dosage: ?          OTHER DOSE:400/100 MG;?
     Route: 048
     Dates: start: 2020
  4. INTERFERON [Suspect]
     Active Substance: INTERFERON
     Indication: COVID-19
     Dosage: ?          OTHER DOSE:6.0  106 IU;OTHER ROUTE:AEROSOL?
     Dates: start: 2020
  5. ARBIDOL [Suspect]
     Active Substance: UMIFENOVIR
     Indication: COVID-19
     Route: 048
     Dates: start: 2020

REACTIONS (3)
  - Off label use [None]
  - Respiratory tract infection [None]
  - Abdominal pain [None]
